FAERS Safety Report 5852887-3 (Version None)
Quarter: 2008Q3

REPORT INFORMATION
  Report Type: 
  Country: None (occurrence: None)
  Receive Date: 20080821
  Receipt Date: 20080814
  Transmission Date: 20090109
  Serious: Yes (Disabling, Other)
  Sender: FDA-Public Use
  Company Number: PHEH2008US05953

PATIENT
  Sex: Female

DRUGS (3)
  1. EXJADE [Suspect]
     Indication: IRON OVERLOAD
     Dosage: 20 MG/KG, QD
     Route: 048
     Dates: start: 20080601, end: 20080601
  2. EXJADE [Suspect]
     Dosage: UNK
     Dates: start: 20080708
  3. DECITABINE [Concomitant]

REACTIONS (5)
  - BALANCE DISORDER [None]
  - DIZZINESS [None]
  - HEARING IMPAIRED [None]
  - MYELODYSPLASTIC SYNDROME [None]
  - VISUAL IMPAIRMENT [None]
